FAERS Safety Report 6018031-7 (Version None)
Quarter: 2008Q4

REPORT INFORMATION
  Report Type: 
  Country: None (occurrence: None)
  Receive Date: 20081223
  Receipt Date: 20081222
  Transmission Date: 20090506
  Serious: Yes (Other)
  Sender: FDA-Public Use
  Company Number: D0056200A

PATIENT
  Age: 39 Year
  Sex: Female

DRUGS (3)
  1. ELONTRIL [Suspect]
     Indication: DEPRESSION
     Dosage: 150MG PER DAY
     Route: 048
     Dates: start: 20080130
  2. VENLAFAXINE HCL [Concomitant]
     Indication: DEPRESSION
     Dosage: 150MG PER DAY
     Route: 048
     Dates: end: 20080219
  3. ANTI-DEPRESSIVE MEDICATION [Concomitant]
     Indication: DEPRESSION
     Route: 065

REACTIONS (2)
  - ABORTION SPONTANEOUS [None]
  - DRUG EXPOSURE DURING PREGNANCY [None]
